FAERS Safety Report 7383226-7 (Version None)
Quarter: 2011Q1

REPORT INFORMATION
  Report Type: 
  Country: None (occurrence: None)
  Receive Date: 20110330
  Receipt Date: 20110318
  Transmission Date: 20110831
  Serious: Yes (Death, Hospitalization)
  Sender: FDA-Public Use
  Company Number: FR-SANOFI-AVENTIS-2010SA071959

PATIENT
  Age: 75 Year
  Sex: Female

DRUGS (5)
  1. HALOPERIDOL [Suspect]
     Route: 065
     Dates: start: 20100514, end: 20100609
  2. TEMESTA [Suspect]
     Route: 048
     Dates: start: 20100514, end: 20100609
  3. MELPERONE [Suspect]
     Route: 065
     Dates: start: 20100514, end: 20100609
  4. STILNOX [Suspect]
     Route: 048
     Dates: start: 20100514, end: 20100609
  5. DIAZEPAM [Suspect]
     Route: 065
     Dates: start: 20100514, end: 20100609

REACTIONS (5)
  - AKATHISIA [None]
  - LEUKOCYTOSIS [None]
  - HYPERTHERMIA [None]
  - MUSCLE RIGIDITY [None]
  - DEATH [None]
